FAERS Safety Report 11875060 (Version 1)
Quarter: 2015Q4

REPORT INFORMATION
  Report Type: Spontaneous
  Country: US (occurrence: None)
  Receive Date: 20151228
  Receipt Date: 20151228
  Transmission Date: 20160305
  Serious: Yes (Life-Threatening)
  Sender: FDA-Public Use
  Company Number: None

PATIENT
  Age: 67 Year
  Sex: Male
  Weight: 91.63 kg

DRUGS (1)
  1. MIRTAZAPINE 15 MG [Suspect]
     Active Substance: MIRTAZAPINE
     Indication: SLEEP DISORDER
     Dosage: 1 PILL HS  ONCE DAILY TAKEN BY MOUTH
     Route: 048
     Dates: start: 20150805, end: 20151224

REACTIONS (5)
  - Loss of consciousness [None]
  - Palpitations [None]
  - Hypotension [None]
  - Cardiac failure congestive [None]
  - Vertigo [None]

NARRATIVE: CASE EVENT DATE: 20151221
